FAERS Safety Report 20661417 (Version 1)
Quarter: 2022Q2

REPORT INFORMATION
  Report Type: Spontaneous
  Country: FR (occurrence: FR)
  Receive Date: 20220401
  Receipt Date: 20220401
  Transmission Date: 20220720
  Serious: Yes (Hospitalization, Other)
  Sender: FDA-Public Use
  Company Number: FR-AFSSAPS-CN20220508

PATIENT
  Age: 43 Year
  Sex: Female
  Weight: 79 kg

DRUGS (8)
  1. FLUCONAZOLE [Suspect]
     Active Substance: FLUCONAZOLE
     Indication: Fungal infection
     Dosage: 400 MILLIGRAM, ONCE A DAY
     Route: 048
     Dates: start: 20220222, end: 20220310
  2. PIPERACILLIN SODIUM\TAZOBACTAM SODIUM [Suspect]
     Active Substance: PIPERACILLIN SODIUM\TAZOBACTAM SODIUM
     Indication: Febrile bone marrow aplasia
     Dosage: 1 DOSAGE FORM, FOUR TIMES/DAY
     Route: 040
     Dates: start: 20220227, end: 20220310
  3. BICNU [Concomitant]
     Active Substance: CARMUSTINE
     Indication: Bone marrow conditioning regimen
     Dosage: 300 MILLIGRAM/SQ. METER (TOTAL 580 MG)
     Route: 041
     Dates: start: 20220216, end: 20220216
  4. METHYLPREDNISOLONE [Concomitant]
     Active Substance: METHYLPREDNISOLONE
     Indication: Bone marrow conditioning regimen
     Dosage: 375 MILLIGRAM, ONCE A DAY
     Route: 048
     Dates: start: 20220216, end: 20220223
  5. MELPHALAN [Concomitant]
     Active Substance: MELPHALAN
     Indication: Bone marrow conditioning regimen
     Dosage: 140 MILLIGRAM/SQ. METER (TOTAL 270 MG)
     Route: 041
     Dates: start: 20220221, end: 20220221
  6. CLAVULANIC ACID [Concomitant]
     Active Substance: CLAVULANIC ACID
     Indication: Bone marrow conditioning regimen
     Dosage: 375 MILLIGRAM, ONCE A DAY
     Route: 048
     Dates: start: 20220214, end: 20220218
  7. AMOXICILLIN [Concomitant]
     Active Substance: AMOXICILLIN
     Indication: Lung disorder
     Dosage: 3 GRAM, ONCE A DAY
     Route: 048
     Dates: start: 20220214, end: 20220218
  8. ETOPOSIDE [Concomitant]
     Active Substance: ETOPOSIDE
     Indication: Bone marrow conditioning regimen
     Dosage: 100 MILLIGRAM/SQ. METER (TOTAL 193 MG)
     Route: 041
     Dates: start: 20220217, end: 20220220

REACTIONS (1)
  - Haemophagocytic lymphohistiocytosis [Recovering/Resolving]

NARRATIVE: CASE EVENT DATE: 20220307
